FAERS Safety Report 14194942 (Version 1)
Quarter: 2017Q4

REPORT INFORMATION
  Report Type: Spontaneous
  Country: US (occurrence: US)
  Receive Date: 20171115
  Receipt Date: 20171115
  Transmission Date: 20180321
  Serious: Yes (Other)
  Sender: FDA-Public Use
  Company Number: None

PATIENT
  Age: 40 Year
  Sex: Female
  Weight: 58.5 kg

DRUGS (1)
  1. KRATOM (MITRAGYNA) [Suspect]
     Active Substance: MITRAGYNINE\HERBALS
     Route: 048

REACTIONS (8)
  - Panic reaction [None]
  - Scar [None]
  - Sleep terror [None]
  - Somnambulism [None]
  - Fall [None]
  - Eye contusion [None]
  - Haemorrhage [None]
  - Laceration [None]

NARRATIVE: CASE EVENT DATE: 20160602
